FAERS Safety Report 7625864-X (Version None)
Quarter: 2011Q3

REPORT INFORMATION
  Report Type: 
  Country: None (occurrence: None)
  Receive Date: 20110721
  Receipt Date: 20110719
  Transmission Date: 20111222
  Serious: No
  Sender: FDA-Public Use
  Company Number: US-B.I. PHARMACEUTICALS,INC./RIDGEFIELD-2011-BP-01269BP

PATIENT
  Sex: Female

DRUGS (9)
  1. AVAPRO [Concomitant]
     Indication: HYPERTENSION
     Dosage: 300 MG
     Route: 048
  2. TOPROL-XL [Concomitant]
     Indication: HYPERTENSION
     Route: 048
  3. PRADAXA [Suspect]
     Indication: ATRIAL FIBRILLATION
     Dosage: 300 MG
     Route: 048
     Dates: start: 20101101
  4. NORVASC [Concomitant]
     Indication: ATRIAL FIBRILLATION
  5. TRAMADOL HCL [Concomitant]
     Indication: BURSA DISORDER
     Route: 048
  6. TRAMADOL HCL [Concomitant]
     Indication: MUSCULOSKELETAL PAIN
  7. NORVASC [Concomitant]
     Indication: HYPERTENSION
     Dosage: 5 MG
     Route: 048
  8. VALIUM [Concomitant]
     Indication: ANXIETY
     Dosage: 5 MG
     Route: 048
  9. COLACE [Concomitant]
     Indication: CONSTIPATION
     Route: 048

REACTIONS (4)
  - OROPHARYNGEAL PAIN [None]
  - PHARYNGEAL OEDEMA [None]
  - BLOOD PRESSURE INCREASED [None]
  - CHOKING SENSATION [None]
